FAERS Safety Report 10565995 (Version 4)
Quarter: 2015Q1

REPORT INFORMATION
  Report Type: Spontaneous
  Country: JP (occurrence: JP)
  Receive Date: 20141105
  Receipt Date: 20150204
  Transmission Date: 20150720
  Serious: Yes (Hospitalization)
  Sender: FDA-Public Use
  Company Number: JP-SA-2014SA129113

PATIENT
  Age: 76 Year
  Sex: Male
  Weight: 48 kg

DRUGS (3)
  1. PLAVIX [Suspect]
     Active Substance: CLOPIDOGREL BISULFATE
     Indication: CEREBRAL INFARCTION
     Route: 048
     Dates: start: 20120803, end: 20140418
  2. LANSOPRAZOLE. [Concomitant]
     Active Substance: LANSOPRAZOLE
     Route: 048
     Dates: start: 20120803
  3. CRESTOR [Concomitant]
     Active Substance: ROSUVASTATIN CALCIUM
     Route: 048
     Dates: start: 20120803

REACTIONS (11)
  - Wheezing [Recovered/Resolved]
  - Cough [Recovered/Resolved]
  - Interstitial lung disease [Recovered/Resolved]
  - Sputum retention [Recovered/Resolved]
  - Asthma [Recovering/Resolving]
  - Rash [Unknown]
  - Bronchial wall thickening [Recovering/Resolving]
  - Decreased appetite [Recovered/Resolved]
  - Eosinophilia [Recovering/Resolving]
  - White blood cell count increased [Recovered/Resolved]
  - Chest X-ray abnormal [Recovered/Resolved]

NARRATIVE: CASE EVENT DATE: 201401
